FAERS Safety Report 18718298 (Version 1)
Quarter: 2021Q1

REPORT INFORMATION
  Report Type: Spontaneous
  Country: US (occurrence: US)
  Receive Date: 20210108
  Receipt Date: 20210108
  Transmission Date: 20210419
  Serious: No
  Sender: FDA-Public Use
  Company Number: US-XERIS PHARMACEUTICALS-2020XER00015

PATIENT

DRUGS (1)
  1. GVOKE [Suspect]
     Active Substance: GLUCAGON
     Dosage: UNK

REACTIONS (1)
  - Injection site pain [Unknown]
